FAERS Safety Report 3744991 (Version 3)
Quarter: 2015Q2

REPORT INFORMATION
  Report Type: Spontaneous
  Country: JP (occurrence: JP)
  Receive Date: 20011226
  Receipt Date: 20150428
  Transmission Date: 20150821
  Serious: Yes (Hospitalization)
  Sender: FDA-Public Use
  Company Number: PHBS2001JP10577

PATIENT
  Age: 85 Year
  Sex: Female
  Weight: 49 kg

DRUGS (9)
  1. SERMION [Suspect]
     Active Substance: NICERGOLINE
     Indication: CEREBRAL INFARCTION
     Dosage: 10MG/DAY
     Dates: start: 20010619, end: 20011016
  2. DIGITOXIN [Concomitant]
     Active Substance: DIGITOXIN
     Dates: start: 20011023
  3. PANALDINE [Concomitant]
     Active Substance: TICLOPIDINE HYDROCHLORIDE
     Dates: end: 20011023
  4. INHIBACE ^BAYER^ [Concomitant]
     Dates: start: 20011023
  5. DOGMATYL [Concomitant]
     Active Substance: SULPIRIDE
     Dates: end: 20011023
  6. CEREDIST [Suspect]
     Active Substance: TALTIRELIN
     Indication: SPINOCEREBELLAR DISORDER
     Route: 048
     Dates: start: 20010523, end: 20011023
  7. DIOVAN [Suspect]
     Active Substance: VALSARTAN
     Indication: HYPERTENSION
     Dosage: 80 MG/DAY
     Route: 048
     Dates: start: 20010619, end: 20011016
  8. LUVOX [Suspect]
     Active Substance: FLUVOXAMINE MALEATE
     Indication: DEPRESSION
     Dosage: 50 MG/DAY
     Dates: start: 20010619, end: 20011016
  9. LANIRAPID [Concomitant]
     Active Substance: METILDIGOXIN
     Dates: end: 20011023

REACTIONS (8)
  - Pyrexia [Recovered/Resolved]
  - Blood alkaline phosphatase increased [Recovered/Resolved]
  - Abasia [Recovered/Resolved]
  - Liver disorder [Recovered/Resolved]
  - Gamma-glutamyltransferase increased [Recovered/Resolved]
  - Alanine aminotransferase increased [Recovered/Resolved]
  - Aspartate aminotransferase increased [Recovered/Resolved]
  - Hepatic function abnormal [Recovered/Resolved]

NARRATIVE: CASE EVENT DATE: 20010904
